FAERS Safety Report 19042336 (Version 1)
Quarter: 2021Q1

REPORT INFORMATION
  Report Type: Report from Study
  Country: EG (occurrence: EG)
  Receive Date: 20210322
  Receipt Date: 20210322
  Transmission Date: 20210420
  Serious: Yes (Other)
  Sender: FDA-Public Use
  Company Number: NVSC2021EG064929

PATIENT
  Age: 12 Year
  Sex: Male

DRUGS (3)
  1. OMNITROPE [Suspect]
     Active Substance: SOMATROPIN
     Dosage: UNK
     Route: 058
     Dates: start: 202102
  2. OSTEOCARE [Concomitant]
     Active Substance: CALCIUM\CHOLECALCIFEROL\MAGNESIUM\ZINC
     Indication: PRODUCT USED FOR UNKNOWN INDICATION
     Dosage: 1 DF, QD (STARTED WITH OMNITROPE)
     Route: 065
  3. OMNITROPE [Suspect]
     Active Substance: SOMATROPIN
     Indication: GROWTH HORMONE DEFICIENCY
     Dosage: UNK
     Route: 058
     Dates: start: 20190601

REACTIONS (4)
  - Lower limb fracture [Recovered/Resolved]
  - Wound [Recovered/Resolved]
  - Road traffic accident [Recovered/Resolved]
  - Blood growth hormone decreased [Unknown]

NARRATIVE: CASE EVENT DATE: 202001
